FAERS Safety Report 4588856-3 (Version None)
Quarter: 2005Q1

REPORT INFORMATION
  Report Type: 
  Country: None (occurrence: None)
  Receive Date: 20050222
  Receipt Date: 20041122
  Transmission Date: 20050727
  Serious: Yes (Disabling, Other)
  Sender: FDA-Public Use
  Company Number: GB-GLAXOSMITHKLINE-B0357863A

PATIENT
  Age: 45 Year
  Sex: Female

DRUGS (4)
  1. SERETIDE [Suspect]
     Indication: ASTHMA
     Dosage: 2PUFF TWICE PER DAY
     Route: 055
     Dates: start: 20031117
  2. THYROXINE [Concomitant]
     Indication: HYPOTHYROIDISM
     Dosage: 175MG PER DAY
     Route: 048
     Dates: start: 20020517
  3. CARBAMAZEPINE [Concomitant]
     Indication: TEMPORAL LOBE EPILEPSY
     Dosage: 200MG TWICE PER DAY
     Route: 065
     Dates: start: 20020517
  4. ALBUTEROL [Concomitant]
     Indication: ASTHMA
     Route: 065
     Dates: start: 19991216

REACTIONS (3)
  - RETINAL DISORDER [None]
  - RETINOPATHY [None]
  - VISUAL ACUITY REDUCED [None]
